FAERS Safety Report 18840703 (Version 1)
Quarter: 2021Q1

REPORT INFORMATION
  Report Type: Spontaneous
  Country: GB (occurrence: GB)
  Receive Date: 20210203
  Receipt Date: 20210203
  Transmission Date: 20210419
  Serious: Yes (Other)
  Sender: FDA-Public Use
  Company Number: GB-JNJFOC-20210201824

PATIENT
  Age: 54 Year
  Sex: Female
  Weight: 70 kg

DRUGS (1)
  1. INVOKANA [Suspect]
     Active Substance: CANAGLIFLOZIN
     Indication: TYPE 2 DIABETES MELLITUS
     Route: 048
     Dates: start: 20191210, end: 20210121

REACTIONS (1)
  - Necrosis [Not Recovered/Not Resolved]

NARRATIVE: CASE EVENT DATE: 20201210
